FAERS Safety Report 7780992-3 (Version None)
Quarter: 2011Q3

REPORT INFORMATION
  Report Type: 
  Country: None (occurrence: None)
  Receive Date: 20110927
  Receipt Date: 20110913
  Transmission Date: 20111222
  Serious: Yes (Other)
  Sender: FDA-Public Use
  Company Number: PHHY2011NL81767

PATIENT
  Sex: Female
  Weight: 87 kg

DRUGS (3)
  1. RASILEZ [Suspect]
     Indication: HYPERTENSION
     Dosage: 150 MG, QD
     Dates: start: 20110411, end: 20110815
  2. HYDROCHLOROTHIAZIDE [Concomitant]
     Dosage: 1 DF, UNK
     Dates: start: 20080808
  3. CRESTOR [Concomitant]
     Dosage: 1 DF, UNK
     Dates: start: 20060520

REACTIONS (2)
  - RENAL IMPAIRMENT [None]
  - ALBUMINURIA [None]
